FAERS Safety Report 7049179-6 (Version None)
Quarter: 2010Q4

REPORT INFORMATION
  Report Type: 
  Country: None (occurrence: None)
  Receive Date: 20101018
  Receipt Date: 20101007
  Transmission Date: 20110411
  Serious: Yes (Hospitalization)
  Sender: FDA-Public Use
  Company Number: US-JNJFOC-20101002174

PATIENT
  Age: 30 Year
  Sex: Male

DRUGS (4)
  1. INVEGA SUSTENNA [Suspect]
     Indication: PRODUCT USED FOR UNKNOWN INDICATION
     Route: 030
  2. INVEGA SUSTENNA [Suspect]
     Route: 030
  3. DEPAKOTE [Concomitant]
     Indication: PRODUCT USED FOR UNKNOWN INDICATION
  4. METFORMIN [Concomitant]
     Indication: PRODUCT USED FOR UNKNOWN INDICATION

REACTIONS (7)
  - AMMONIA INCREASED [None]
  - BLOOD CREATININE INCREASED [None]
  - DIABETES MELLITUS [None]
  - DRUG INEFFECTIVE [None]
  - MYELOCYTE COUNT INCREASED [None]
  - RENAL FUNCTION TEST ABNORMAL [None]
  - WHITE BLOOD CELL COUNT INCREASED [None]
